FAERS Safety Report 6150097-6 (Version None)
Quarter: 2009Q2

REPORT INFORMATION
  Report Type: 
  Country: None (occurrence: None)
  Receive Date: 20090409
  Receipt Date: 20090331
  Transmission Date: 20091009
  Serious: Yes (Life-Threatening, Hospitalization)
  Sender: FDA-Public Use
  Company Number: JP-PFIZER INC-2009181495

PATIENT

DRUGS (7)
  1. SUNITINIB MALATE [Suspect]
     Indication: GASTROINTESTINAL STROMAL TUMOUR
     Dosage: 50 MG, 1X/DAY
     Route: 048
     Dates: start: 20090113
  2. ARTIST [Concomitant]
     Dosage: UNK
     Route: 048
  3. NAUZELIN [Concomitant]
     Route: 048
  4. LASIX [Concomitant]
     Dosage: UNK
     Route: 048
  5. LENDORMIN [Concomitant]
     Dosage: UNK
     Route: 048
  6. ROHYPNOL [Concomitant]
     Dosage: UNK
  7. URSO 250 [Concomitant]
     Dosage: UNK
     Route: 048

REACTIONS (5)
  - HYPOAESTHESIA [None]
  - MYALGIA [None]
  - NEUTROPHIL COUNT DECREASED [None]
  - PLATELET COUNT DECREASED [None]
  - PYREXIA [None]
